FAERS Safety Report 4970577-6 (Version None)
Quarter: 2006Q2

REPORT INFORMATION
  Report Type: 
  Country: None (occurrence: None)
  Receive Date: 20060412
  Receipt Date: 20051122
  Transmission Date: 20061013
  Serious: Yes (Death, Hospitalization)
  Sender: FDA-Public Use
  Company Number: US-MERCK-0511USA03796

PATIENT
  Age: 69 Year
  Sex: Female
  Weight: 73 kg

DRUGS (6)
  1. VIOXX [Suspect]
     Indication: PAIN MANAGEMENT
     Route: 048
     Dates: start: 20001101, end: 20021125
  2. ZESTRIL [Concomitant]
     Route: 065
  3. FOSAMAX [Concomitant]
     Route: 048
  4. MIACALCIN [Concomitant]
     Route: 065
  5. OS-CAL [Concomitant]
     Route: 048
  6. PREMARIN [Concomitant]
     Route: 065

REACTIONS (4)
  - CARDIAC ARREST [None]
  - CARDIAC FAILURE CONGESTIVE [None]
  - CORONARY ARTERY DISEASE [None]
  - PERIPHERAL VASCULAR DISORDER [None]
